FAERS Safety Report 14967254 (Version 1)
Quarter: 2018Q2

REPORT INFORMATION
  Report Type: Spontaneous
  Country: MY (occurrence: MY)
  Receive Date: 20180604
  Receipt Date: 20180604
  Transmission Date: 20180711
  Serious: Yes (Death)
  Sender: FDA-Public Use
  Company Number: MY-CHEPLA-C20170497

PATIENT
  Age: 49 Year
  Sex: Female

DRUGS (1)
  1. VESANOID [Suspect]
     Active Substance: TRETINOIN
     Indication: ACUTE PROMYELOCYTIC LEUKAEMIA
     Route: 048

REACTIONS (2)
  - Acute pulmonary oedema [Fatal]
  - Respiratory distress [Fatal]
